FAERS Safety Report 11628287 (Version 1)
Quarter: 2015Q4

REPORT INFORMATION
  Report Type: Report from Study
  Country: US (occurrence: US)
  Receive Date: 20151014
  Receipt Date: 20151014
  Transmission Date: 20160304
  Serious: Yes (Other)
  Sender: FDA-Public Use
  Company Number: US-ABBVIE-15K-163-1477165-00

PATIENT
  Sex: Female

DRUGS (1)
  1. HUMIRA [Suspect]
     Active Substance: ADALIMUMAB
     Indication: CROHN^S DISEASE
     Route: 065
     Dates: start: 20141029, end: 20150708

REACTIONS (6)
  - Macular hole [Recovering/Resolving]
  - Vitreous floaters [Unknown]
  - Retinal detachment [Recovering/Resolving]
  - Drug effect decreased [Not Recovered/Not Resolved]
  - Cataract [Recovering/Resolving]
  - Constipation [Unknown]

NARRATIVE: CASE EVENT DATE: 2015
